FAERS Safety Report 4668153-8 (Version None)
Quarter: 2005Q2

REPORT INFORMATION
  Report Type: 
  Country: None (occurrence: None)
  Receive Date: 20050523
  Receipt Date: 20050224
  Transmission Date: 20051028
  Serious: Yes (Other)
  Sender: FDA-Public Use
  Company Number: PHBS2005US02927

PATIENT
  Age: 51 Year
  Sex: Female

DRUGS (6)
  1. PAMIDRONATE DISODIUM [Suspect]
     Indication: METASTATIC NEOPLASM
     Dosage: 90 MG, QMO
  2. DEXAMETHASONE [Suspect]
     Dosage: 20 MG, QW
     Route: 048
  3. TAXOL [Suspect]
     Dosage: 330 MG, QW
     Route: 065
  4. ANASTROZOLE [Suspect]
     Dosage: 1 MG, QW
     Route: 065
  5. CIMETIDINE [Concomitant]
  6. DIPHENHYDRAMINE HCL [Concomitant]
     Dosage: 25 MG, QW

REACTIONS (8)
  - FISTULA [None]
  - INFECTION [None]
  - OSTEONECROSIS [None]
  - PAIN IN JAW [None]
  - SINUS DISORDER [None]
  - THERAPY NON-RESPONDER [None]
  - TOOTH EXTRACTION [None]
  - WOUND DEBRIDEMENT [None]
